FAERS Safety Report 8172786-4 (Version None)
Quarter: 2012Q1

REPORT INFORMATION
  Report Type: 
  Country: None (occurrence: None)
  Receive Date: 20120229
  Receipt Date: 20120221
  Transmission Date: 20120608
  Serious: Yes (Other)
  Sender: FDA-Public Use
  Company Number: US-NOVOPROD-345485

PATIENT
  Age: 58 Year
  Sex: Female
  Weight: 82.993 kg

DRUGS (2)
  1. VAGIFEM [Suspect]
     Indication: VULVOVAGINAL DRYNESS
     Dosage: 1-3 DOSES PER WEEK
     Route: 067
     Dates: end: 20111220
  2. PRILOSEC [Concomitant]
     Indication: GASTROOESOPHAGEAL REFLUX DISEASE
     Dosage: 20 MG, QD
     Route: 065

REACTIONS (8)
  - DYSPNOEA [None]
  - CHEST DISCOMFORT [None]
  - CHEST PAIN [None]
  - LOSS OF CONSCIOUSNESS [None]
  - ABDOMINAL DISCOMFORT [None]
  - VOMITING [None]
  - NAUSEA [None]
  - DIARRHOEA [None]
